FAERS Safety Report 4415770-6 (Version None)
Quarter: 2004Q2

REPORT INFORMATION
  Report Type: 
  Country: None (occurrence: None)
  Receive Date: 20040628
  Receipt Date: 20040504
  Transmission Date: 20050107
  Serious: Yes (Death)
  Sender: FDA-Public Use
  Company Number: 366874

PATIENT
  Age: 52 Year
  Sex: Male

DRUGS (1)
  1. CELLCEPT [Suspect]

REACTIONS (2)
  - CARDIAC FAILURE [None]
  - DISEASE PROGRESSION [None]
